FAERS Safety Report 25985749 (Version 1)
Quarter: 2025Q4

REPORT INFORMATION
  Report Type: Spontaneous
  Country: US (occurrence: US)
  Receive Date: 20251101
  Receipt Date: 20251101
  Transmission Date: 20260117
  Serious: No
  Sender: GLAND PHARMA LTD
  Company Number: US-GLANDPHARMA-US-2025GLNSPO02008

PATIENT

DRUGS (1)
  1. LATANOPROST [Suspect]
     Active Substance: LATANOPROST
     Indication: Normal tension glaucoma

REACTIONS (1)
  - Eye irritation [Unknown]
